FAERS Safety Report 23112363 (Version 2)
Quarter: 2023Q4

REPORT INFORMATION
  Report Type: Spontaneous
  Country: US (occurrence: US)
  Receive Date: 20231027
  Receipt Date: 20231231
  Transmission Date: 20240110
  Serious: Yes (Life-Threatening, Hospitalization, Other)
  Sender: FDA-Public Use
  Company Number: US-MLMSERVICE-20231017-4609608-2

PATIENT
  Age: 69 Year
  Sex: Male

DRUGS (4)
  1. DEXAMETHASONE [Suspect]
     Active Substance: DEXAMETHASONE
     Indication: COVID-19 pneumonia
     Dosage: 4 MILLIGRAM, ONCE A DAY
     Route: 042
  2. BARICITINIB [Suspect]
     Active Substance: BARICITINIB
     Indication: COVID-19 pneumonia
     Dosage: 4 MILLIGRAM, ONCE A DAY
     Route: 048
  3. OXYGEN [Concomitant]
     Active Substance: OXYGEN
     Indication: COVID-19 pneumonia
     Dosage: HIGH FLOW
     Route: 045
  4. REMDESIVIR [Concomitant]
     Active Substance: REMDESIVIR
     Indication: COVID-19 pneumonia
     Dosage: 100 MILLIGRAM, ONCE A DAY
     Route: 042

REACTIONS (4)
  - Bronchopulmonary aspergillosis [Recovered/Resolved]
  - Mycotic endophthalmitis [Recovering/Resolving]
  - Cerebral aspergillosis [Recovered/Resolved]
  - Disseminated aspergillosis [Recovered/Resolved]
